FAERS Safety Report 8166133-1 (Version None)
Quarter: 2012Q1

REPORT INFORMATION
  Report Type: 
  Country: None (occurrence: None)
  Receive Date: 20120227
  Receipt Date: 20110418
  Transmission Date: 20120608
  Serious: No
  Sender: FDA-Public Use
  Company Number: US-MYLANLABS-2011S1006639

PATIENT
  Age: 15 Year
  Sex: Female
  Weight: 49.44 kg

DRUGS (6)
  1. CONCERTA [Concomitant]
     Route: 048
  2. AMNESTEEM [Suspect]
     Indication: ACNE
     Route: 048
     Dates: start: 20110216, end: 20110325
  3. CLONIDINE [Concomitant]
     Route: 048
  4. CONCERTA [Concomitant]
     Route: 048
  5. HALDOL [Concomitant]
  6. YAZ /01502501/ [Concomitant]

REACTIONS (2)
  - MOOD SWINGS [None]
  - DEPRESSED MOOD [None]
